FAERS Safety Report 5197479-7 (Version None)
Quarter: 2006Q4

REPORT INFORMATION
  Report Type: 
  Country: None (occurrence: None)
  Receive Date: 20060927
  Receipt Date: 20060628
  Transmission Date: 20070319
  Serious: No
  Sender: FDA-Public Use
  Company Number: US-CVT-061527

PATIENT
  Age: 76 Year
  Sex: Male
  Weight: 98 kg

DRUGS (13)
  1. RANEXA [Suspect]
     Indication: ANGINA PECTORIS
     Dosage: 500 MG, BID, ORAL
     Route: 048
     Dates: start: 20060410, end: 20060426
  2. ALLOPURINOL [Concomitant]
  3. ASPIRIN [Concomitant]
  4. CALCIUM WITH VITAMIN D (CALCIUM PHOSPHATE, CALCIUM SODIUM LACTATE, ERG [Concomitant]
  5. CARDURA [Concomitant]
  6. HYDROCHLOROTHIAZIDE [Concomitant]
  7. KLOR-CON [Concomitant]
  8. LIPITOR [Concomitant]
  9. MULTIVITAMIN [Concomitant]
  10. PROTONIX [Concomitant]
  11. TARKA [Concomitant]
  12. TOPROL-XL [Concomitant]
  13. EXTRA STRENGTH TYLENOL [Concomitant]

REACTIONS (1)
  - VENTRICULAR EXTRASYSTOLES [None]
